FAERS Safety Report 17127286 (Version 2)
Quarter: 2019Q4

REPORT INFORMATION
  Report Type: Spontaneous
  Country: NL (occurrence: NL)
  Receive Date: 20191209
  Receipt Date: 20191209
  Transmission Date: 20200122
  Serious: Yes (Life-Threatening, Hospitalization, Other)
  Sender: FDA-Public Use
  Company Number: NL-ALKEM LABORATORIES LIMITED-NL-ALKEM-2019-10505

PATIENT
  Age: 50 Year

DRUGS (1)
  1. CAPECITABINE. [Suspect]
     Active Substance: CAPECITABINE
     Indication: METASTASES TO LYMPH NODES
     Dosage: 1000 MILLIGRAM/SQ. METER, BID
     Route: 065

REACTIONS (9)
  - Erythema [Unknown]
  - Swelling face [Unknown]
  - Febrile neutropenia [Unknown]
  - Nausea [Unknown]
  - Leukopenia [Unknown]
  - Toxicity to various agents [Unknown]
  - Hypersensitivity [Unknown]
  - Oral disorder [Unknown]
  - Diarrhoea [Unknown]
